FAERS Safety Report 6691579-8 (Version None)
Quarter: 2010Q2

REPORT INFORMATION
  Report Type: 
  Country: None (occurrence: None)
  Receive Date: 20100422
  Receipt Date: 20100413
  Transmission Date: 20101027
  Serious: Yes (Death, Hospitalization)
  Sender: FDA-Public Use
  Company Number: JP-JNJFOC-20091100615

PATIENT
  Sex: Female
  Weight: 58 kg

DRUGS (10)
  1. DOXORUBICIN HCL [Suspect]
     Indication: OVARIAN CANCER RECURRENT
     Route: 042
  2. PLAVIX [Concomitant]
     Indication: CEREBRAL INFARCTION
     Route: 048
  3. MUCOSTA [Concomitant]
     Indication: CHOLELITHIASIS
     Route: 048
  4. MOBIC [Concomitant]
     Indication: ABDOMINAL PAIN UPPER
     Route: 048
  5. OXYCONTIN [Concomitant]
     Indication: ABDOMINAL PAIN UPPER
     Route: 048
  6. AZUNOL [Concomitant]
     Indication: PROPHYLAXIS
     Route: 002
  7. PROCHLORPERAZINE [Concomitant]
     Indication: PROPHYLAXIS
     Route: 048
  8. MAGMITT [Concomitant]
     Indication: CONSTIPATION
     Route: 048
  9. HEPARIN SODIUM [Concomitant]
     Indication: CEREBRAL INFARCTION
     Route: 042
  10. RADICUT [Concomitant]
     Indication: CEREBRAL INFARCTION
     Route: 042

REACTIONS (2)
  - CEREBRAL INFARCTION [None]
  - OVARIAN CANCER [None]
